FAERS Safety Report 5522524-6 (Version None)
Quarter: 2007Q4

REPORT INFORMATION
  Report Type: 
  Country: None (occurrence: None)
  Receive Date: 20071120
  Receipt Date: 20071109
  Transmission Date: 20080405
  Serious: Yes (Hospitalization, Other)
  Sender: FDA-Public Use
  Company Number: US-PFIZER INC-2007095258

PATIENT
  Sex: Female

DRUGS (4)
  1. NORVASC [Suspect]
     Indication: CEREBROVASCULAR ACCIDENT
  2. DIGOXIN [Concomitant]
  3. LOPRESSOR [Concomitant]
  4. COUMADIN [Concomitant]

REACTIONS (2)
  - GENERALISED OEDEMA [None]
  - HEART VALVE INCOMPETENCE [None]
